FAERS Safety Report 6648702-0 (Version None)
Quarter: 2010Q1

REPORT INFORMATION
  Report Type: 
  Country: None (occurrence: None)
  Receive Date: 20100324
  Receipt Date: 20100312
  Transmission Date: 20100710
  Serious: Yes (Other)
  Sender: FDA-Public Use
  Company Number: BR-PFIZER INC-2010032722

PATIENT
  Age: 37 Year
  Sex: Male
  Weight: 90 kg

DRUGS (1)
  1. VIBRAMICINA [Suspect]
     Indication: ACNE
     Dosage: 200 MG, 1X/DAY
     Route: 048
     Dates: start: 20100201, end: 20100301

REACTIONS (6)
  - ABDOMINAL PAIN UPPER [None]
  - EAR INFECTION [None]
  - FATIGUE [None]
  - GASTRITIS [None]
  - HEADACHE [None]
  - HEPATIC ENZYME ABNORMAL [None]
